FAERS Safety Report 7735237-7 (Version None)
Quarter: 2011Q3

REPORT INFORMATION
  Report Type: 
  Country: None (occurrence: None)
  Receive Date: 20110907
  Receipt Date: 20110401
  Transmission Date: 20111222
  Serious: No
  Sender: FDA-Public Use
  Company Number: US-BAYER-2011-028872

PATIENT
  Sex: Female

DRUGS (1)
  1. MIRENA [Suspect]
     Indication: CONTRACEPTION
     Dosage: UNK
     Dates: start: 20100122

REACTIONS (5)
  - VAGINAL ODOUR [None]
  - CHILLS [None]
  - ABDOMINAL PAIN [None]
  - MUSCULOSKELETAL CHEST PAIN [None]
  - VULVOVAGINAL MYCOTIC INFECTION [None]
